FAERS Safety Report 6075942-4 (Version None)
Quarter: 2009Q1

REPORT INFORMATION
  Report Type: 
  Country: None (occurrence: None)
  Receive Date: 20090212
  Receipt Date: 20090202
  Transmission Date: 20090719
  Serious: Yes (Other)
  Sender: FDA-Public Use
  Company Number: BR-PFIZER INC-2008090575

PATIENT

DRUGS (1)
  1. CELEBRA [Suspect]
     Indication: PROSTATITIS
     Route: 048
     Dates: start: 20010101

REACTIONS (4)
  - DYSURIA [None]
  - HAEMANGIOMA OF LIVER [None]
  - HAEMATOSPERMIA [None]
  - HAEMATURIA [None]
